FAERS Safety Report 15052113 (Version 2)
Quarter: 2018Q2

REPORT INFORMATION
  Report Type: Spontaneous
  Country: US (occurrence: US)
  Receive Date: 20180622
  Receipt Date: 20180626
  Transmission Date: 20180711
  Serious: Yes (Death, Life-Threatening, Hospitalization, Other)
  Sender: FDA-Public Use
  Company Number: US-JNJFOC-20180623213

PATIENT
  Age: 75 Year
  Sex: Male

DRUGS (3)
  1. RIVAROXABAN [Suspect]
     Active Substance: RIVAROXABAN
     Indication: ATRIAL FIBRILLATION
     Route: 048
  2. ACETYLSALICYLIC ACID [Suspect]
     Active Substance: ASPIRIN
     Indication: PRODUCT USED FOR UNKNOWN INDICATION
     Route: 065
  3. HEPARIN [Suspect]
     Active Substance: HEPARIN SODIUM
     Indication: PRODUCT USED FOR UNKNOWN INDICATION
     Route: 065

REACTIONS (13)
  - Traumatic haemothorax [Unknown]
  - Fractured sacrum [Unknown]
  - Rib fracture [Unknown]
  - Labelled drug-drug interaction medication error [Unknown]
  - Subdural haematoma [Unknown]
  - Arterial haemorrhage [Unknown]
  - Contraindicated product administered [Unknown]
  - Pulmonary embolism [Unknown]
  - Shock haemorrhagic [Unknown]
  - Haemorrhage intracranial [Fatal]
  - Subarachnoid haemorrhage [Unknown]
  - Clavicle fracture [Unknown]
  - Infusion site extravasation [Unknown]
